FAERS Safety Report 7345697-1 (Version None)
Quarter: 2011Q1

REPORT INFORMATION
  Report Type: 
  Country: None (occurrence: None)
  Receive Date: 20110310
  Receipt Date: 20110225
  Transmission Date: 20110831
  Serious: Yes (Other)
  Sender: FDA-Public Use
  Company Number: IT-MYLANLABS-2011S1003865

PATIENT
  Sex: Female

DRUGS (2)
  1. ATENOLOL [Suspect]
     Indication: PALPITATIONS
     Route: 048
     Dates: start: 20101014, end: 20101014
  2. EUTIROX [Concomitant]
     Indication: ANXIETY

REACTIONS (2)
  - CHILLS [None]
  - DIZZINESS [None]
